FAERS Safety Report 4761676-2 (Version None)
Quarter: 2005Q3

REPORT INFORMATION
  Report Type: 
  Country: None (occurrence: None)
  Receive Date: 20050831
  Receipt Date: 20050715
  Transmission Date: 20060218
  Serious: No
  Sender: FDA-Public Use
  Company Number: PHEH2005US07920

PATIENT
  Age: 81 Year
  Sex: Female

DRUGS (4)
  1. ENABLEX [Suspect]
     Indication: INCONTINENCE
     Dosage: 7.5 MG, QD, ORAL
     Route: 048
     Dates: start: 20050706, end: 20050714
  2. SYNTHROID [Concomitant]
  3. WELCHOL [Concomitant]
  4. WARFARIN SODIUM [Concomitant]

REACTIONS (6)
  - ASTHENIA [None]
  - CHOKING SENSATION [None]
  - DYSPHONIA [None]
  - INCREASED UPPER AIRWAY SECRETION [None]
  - NASAL CONGESTION [None]
  - PHARYNGOLARYNGEAL PAIN [None]
